FAERS Safety Report 4541019-X (Version None)
Quarter: 2004Q4

REPORT INFORMATION
  Report Type: 
  Country: None (occurrence: None)
  Receive Date: 20041228
  Receipt Date: 20041217
  Transmission Date: 20050328
  Serious: Yes (Other)
  Sender: FDA-Public Use
  Company Number: 2004103148

PATIENT
  Age: 54 Year
  Sex: Female

DRUGS (3)
  1. LIPITOR [Suspect]
     Indication: DYSLIPIDAEMIA
     Dosage: 10 MG (10 MG, 1 IN 1 D), ORAL
     Route: 048
     Dates: start: 20010701
  2. LOSARTAN POTASSIUM [Concomitant]
  3. KLIOGEST ^NOVO INDUSTRI^ (ESTRADIOL, NORETHISTERONE ACETATE) [Concomitant]

REACTIONS (1)
  - BREAST CANCER [None]
